FAERS Safety Report 26132033 (Version 2)
Quarter: 2025Q4

REPORT INFORMATION
  Report Type: Spontaneous
  Country: JP (occurrence: JP)
  Receive Date: 20251208
  Receipt Date: 20251229
  Transmission Date: 20260117
  Serious: Yes (Death)
  Sender: INCYTE
  Company Number: JP-002147023-NVSJ2025JP011741

PATIENT
  Age: 79 Year

DRUGS (2)
  1. RUXOLITINIB [Suspect]
     Active Substance: RUXOLITINIB
     Indication: Myelofibrosis
     Dosage: 10 MG, BID
     Route: 061
  2. RUXOLITINIB [Suspect]
     Active Substance: RUXOLITINIB
     Dosage: 20 MG, BID
     Route: 061

REACTIONS (2)
  - Myelofibrosis [Fatal]
  - Malignant neoplasm progression [Fatal]
